FAERS Safety Report 4532970-5 (Version None)
Quarter: 2004Q4

REPORT INFORMATION
  Report Type: 
  Country: None (occurrence: None)
  Receive Date: 20041206
  Receipt Date: 20041011
  Transmission Date: 20050328
  Serious: Yes (Other)
  Sender: FDA-Public Use
  Company Number: USA041080686

PATIENT
  Age: 34 Year
  Sex: Male

DRUGS (3)
  1. CYMBALTA [Suspect]
     Indication: DEPRESSION
     Dosage: 90 MG DAY
  2. MULTIVITAMINS WITH MINERALS [Concomitant]
  3. IBUPROFEN [Concomitant]

REACTIONS (6)
  - BLOOD PRESSURE INCREASED [None]
  - HEART RATE INCREASED [None]
  - INTENTIONAL OVERDOSE [None]
  - PRESCRIBED OVERDOSE [None]
  - SUICIDE ATTEMPT [None]
  - VOMITING [None]
